APPROVED DRUG PRODUCT: BYQLOVI
Active Ingredient: CLOBETASOL PROPIONATE
Strength: 0.05%
Dosage Form/Route: SUSPENSION/DROPS;OPHTHALMIC
Application: N218158 | Product #001
Applicant: HARROW EYE LLC
Approved: Mar 4, 2024 | RLD: Yes | RS: Yes | Type: RX

PATENTS:
Patent 11376262 | Expires: May 9, 2036
Patent 10588913 | Expires: May 9, 2036

EXCLUSIVITY:
Code: NP | Date: Mar 4, 2027